FAERS Safety Report 6793217-2 (Version None)
Quarter: 2010Q2

REPORT INFORMATION
  Report Type: 
  Country: None (occurrence: None)
  Receive Date: 20100624
  Receipt Date: 20090831
  Transmission Date: 20101027
  Serious: Yes (Death)
  Sender: FDA-Public Use
  Company Number: US-MYLANLABS-2009S1014675

PATIENT
  Age: 44 Year
  Sex: Male
  Weight: 72.58 kg

DRUGS (8)
  1. CLOZAPINE [Suspect]
  2. LITHIUM [Concomitant]
  3. QUETIAPINE [Concomitant]
  4. LORAZEPAM [Concomitant]
     Indication: AGITATION
  5. CHLORPROMAZINE [Concomitant]
     Indication: AGITATION
  6. OXYCODONE HCL [Concomitant]
  7. CREON [Concomitant]
  8. PROMETHAZINE [Concomitant]
     Route: 054

REACTIONS (1)
  - RESPIRATORY ARREST [None]
